FAERS Safety Report 9243206 (Version 2)
Quarter: 2013Q2

REPORT INFORMATION
  Report Type: Spontaneous
  Country: GB (occurrence: GB)
  Receive Date: 20130419
  Receipt Date: 20130430
  Transmission Date: 20140414
  Serious: Yes (Death, Other)
  Sender: FDA-Public Use
  Company Number: GB-009507513-1304GBR006761

PATIENT
  Age: 80 Year
  Sex: Female

DRUGS (1)
  1. INVANZ [Suspect]
     Indication: OSTEOMYELITIS
     Dosage: 2 OR 3 DOSES

REACTIONS (4)
  - Cerebral haemorrhage [Fatal]
  - Convulsion [Recovered/Resolved]
  - Osteomyelitis [Unknown]
  - Blood creatinine abnormal [Unknown]
